FAERS Safety Report 14600987 (Version 1)
Quarter: 2018Q1

REPORT INFORMATION
  Report Type: Spontaneous
  Country: SI (occurrence: SI)
  Receive Date: 20180305
  Receipt Date: 20180305
  Transmission Date: 20180509
  Serious: Yes (Hospitalization, Other)
  Sender: FDA-Public Use
  Company Number: SI-SA-2018SA045874

PATIENT
  Age: 79 Year
  Sex: Male

DRUGS (26)
  1. FENOTEROL [Concomitant]
     Active Substance: FENOTEROL
     Route: 051
  2. MORPHINE [Concomitant]
     Active Substance: MORPHINE
  3. TAMSULOSIN [Concomitant]
     Active Substance: TAMSULOSIN
  4. NITROGLYCERIN. [Concomitant]
     Active Substance: NITROGLYCERIN
  5. ROSUVASTATIN. [Concomitant]
     Active Substance: ROSUVASTATIN
     Route: 065
  6. OCTAPLEX [Concomitant]
     Active Substance: COAGULATION FACTOR IX HUMAN\COAGULATION FACTOR VII HUMAN\COAGULATION FACTOR X HUMAN\PROTEIN C\PROTEIN S HUMAN\PROTHROMBIN
  7. CLOPIDOGREL BISULFATE. [Suspect]
     Active Substance: CLOPIDOGREL BISULFATE
     Route: 048
     Dates: start: 20170101
  8. KONAKION [Concomitant]
     Active Substance: PHYTONADIONE
     Route: 042
  9. FUROSEMIDE. [Concomitant]
     Active Substance: FUROSEMIDE
  10. RIVAROXABAN [Concomitant]
     Active Substance: RIVAROXABAN
  11. IPRATROPIUM [Concomitant]
     Active Substance: IPRATROPIUM
  12. ASPIRIN PROTECT [Interacting]
     Active Substance: ASPIRIN
     Route: 048
     Dates: start: 20170101, end: 20170101
  13. HEPARIN [Suspect]
     Active Substance: HEPARIN SODIUM
     Route: 065
     Dates: start: 20170101, end: 20170101
  14. WARFARIN [Concomitant]
     Active Substance: WARFARIN
  15. PANTOPRAZOLE [Concomitant]
     Active Substance: PANTOPRAZOLE
     Route: 065
  16. TORASEMID [Concomitant]
     Active Substance: TORSEMIDE
  17. AMLODIPINE [Concomitant]
     Active Substance: AMLODIPINE BESYLATE
     Dosage: DOSE:1 UNIT(S)
     Route: 065
  18. DUTASTERIDE. [Concomitant]
     Active Substance: DUTASTERIDE
  19. SPIRONOLACTONE. [Concomitant]
     Active Substance: SPIRONOLACTONE
     Route: 065
  20. POTASSIUM BROMIDE/AMMONIUM BROMIDE/SODIUM BROMIDE [Concomitant]
  21. TIOTROPIUM BROMIDE [Concomitant]
     Active Substance: TIOTROPIUM BROMIDE
  22. ARCTOSTAPHYLOS UVA-URSI LEAF/AGATHOSMA BETULINA LEAF [Concomitant]
  23. MAREVAN [Suspect]
     Active Substance: WARFARIN SODIUM
     Route: 065
     Dates: start: 20170101
  24. OXYGEN. [Concomitant]
     Active Substance: OXYGEN
  25. SODIUM CITRATE. [Concomitant]
     Active Substance: SODIUM CITRATE
  26. BISOPROLOL [Concomitant]
     Active Substance: BISOPROLOL

REACTIONS (7)
  - Medical device site haemorrhage [Recovered/Resolved]
  - Drug administration error [Unknown]
  - Haematuria [Recovered/Resolved]
  - Ventricular asystole [Recovered/Resolved]
  - Syncope [Recovered/Resolved]
  - Bradycardia [Recovered/Resolved]
  - Labelled drug-drug interaction medication error [Unknown]
